FAERS Safety Report 4984766-8 (Version None)
Quarter: 2006Q2

REPORT INFORMATION
  Report Type: 
  Country: None (occurrence: None)
  Receive Date: 20060427
  Receipt Date: 20050803
  Transmission Date: 20061013
  Serious: Yes (Death, Hospitalization, Other)
  Sender: FDA-Public Use
  Company Number: US-BRISTOL-MYERS SQUIBB COMPANY-13061866

PATIENT
  Age: 63 Year
  Sex: Male

DRUGS (9)
  1. MURAGLITAZAR [Suspect]
     Indication: DIABETES MELLITUS NON-INSULIN-DEPENDENT
     Dates: start: 20050415, end: 20050703
  2. METFORMIN HYDROCHLORIDE [Suspect]
     Indication: DIABETES MELLITUS NON-INSULIN-DEPENDENT
     Route: 048
     Dates: start: 20040101, end: 20050708
  3. GLIPIZIDE [Concomitant]
     Dates: start: 20050708, end: 20050725
  4. ACTOS [Concomitant]
     Dates: start: 20050708, end: 20050725
  5. ZESTORETIC [Concomitant]
     Dosage: 1 DOSAGE FORM = 20/12.5 MG
     Dates: start: 20041030, end: 20050725
  6. ROLAIDS [Concomitant]
     Dates: start: 19840101
  7. VIAGRA [Concomitant]
     Dates: start: 20020101
  8. ASPIRIN [Concomitant]
     Dates: start: 20020101, end: 20050725
  9. TYLENOL (CAPLET) [Concomitant]
     Dates: start: 20050719, end: 20050725

REACTIONS (11)
  - CARDIO-RESPIRATORY ARREST [None]
  - FALL [None]
  - HAEMATEMESIS [None]
  - LOBAR PNEUMONIA [None]
  - LUNG INFILTRATION [None]
  - METABOLIC ACIDOSIS [None]
  - MUSCLE STRAIN [None]
  - REFUSAL OF TREATMENT BY PATIENT [None]
  - RENAL FAILURE ACUTE [None]
  - RESPIRATORY FAILURE [None]
  - SEPSIS [None]
